FAERS Safety Report 5035335-5 (Version None)
Quarter: 2006Q2

REPORT INFORMATION
  Report Type: 
  Country: None (occurrence: None)
  Receive Date: 20060523
  Receipt Date: 20050512
  Transmission Date: 20061013
  Serious: Yes (Other)
  Sender: FDA-Public Use
  Company Number: 0505-211

PATIENT
  Sex: Male

DRUGS (8)
  1. DUONEB [Suspect]
     Indication: DYSPNOEA
     Dosage: DUONEB-Q6-NEBULIZED
     Dates: start: 20050505
  2. COUMADIN [Concomitant]
  3. MIRTAZAPINE [Concomitant]
  4. PREDNISONE TAB [Concomitant]
  5. POTASSIUM TABLETS [Concomitant]
  6. LASIX [Concomitant]
  7. DIGOXIN [Concomitant]
  8. FORADIL [Concomitant]

REACTIONS (1)
  - UNEVALUABLE EVENT [None]
